FAERS Safety Report 25529140 (Version 1)
Quarter: 2025Q3

REPORT INFORMATION
  Report Type: Spontaneous
  Country: JP (occurrence: JP)
  Receive Date: 20250708
  Receipt Date: 20250708
  Transmission Date: 20251020
  Serious: Yes (Other)
  Sender: MYLAN
  Company Number: JP-MYLANLABS-2025M1056346

PATIENT
  Age: 15 Year
  Sex: Male

DRUGS (12)
  1. CYCLOSPORINE [Suspect]
     Active Substance: CYCLOSPORINE
     Indication: Nephrotic syndrome
  2. CYCLOSPORINE [Suspect]
     Active Substance: CYCLOSPORINE
     Route: 065
  3. CYCLOSPORINE [Suspect]
     Active Substance: CYCLOSPORINE
     Route: 065
  4. CYCLOSPORINE [Suspect]
     Active Substance: CYCLOSPORINE
  5. PREDNISOLONE [Suspect]
     Active Substance: PREDNISOLONE
     Indication: Nephrotic syndrome
  6. PREDNISOLONE [Suspect]
     Active Substance: PREDNISOLONE
     Route: 065
  7. PREDNISOLONE [Suspect]
     Active Substance: PREDNISOLONE
     Route: 065
  8. PREDNISOLONE [Suspect]
     Active Substance: PREDNISOLONE
  9. METHYLPREDNISOLONE [Suspect]
     Active Substance: METHYLPREDNISOLONE
     Indication: Nephrotic syndrome
  10. METHYLPREDNISOLONE [Suspect]
     Active Substance: METHYLPREDNISOLONE
     Route: 065
  11. METHYLPREDNISOLONE [Suspect]
     Active Substance: METHYLPREDNISOLONE
     Route: 065
  12. METHYLPREDNISOLONE [Suspect]
     Active Substance: METHYLPREDNISOLONE

REACTIONS (1)
  - Drug ineffective [Unknown]
